FAERS Safety Report 6358290-4 (Version None)
Quarter: 2009Q3

REPORT INFORMATION
  Report Type: 
  Country: None (occurrence: None)
  Receive Date: 20090916
  Receipt Date: 20090909
  Transmission Date: 20100115
  Serious: Yes (Hospitalization, Other)
  Sender: FDA-Public Use
  Company Number: PHHY2009JP28592

PATIENT
  Age: 66 Year
  Sex: Male

DRUGS (2)
  1. GLEEVEC [Suspect]
     Indication: CHRONIC MYELOID LEUKAEMIA
     Dosage: 200 MG DAILY
     Route: 048
     Dates: start: 20060101
  2. GLEEVEC [Suspect]
     Dosage: 300 MG/DAY
     Route: 048
     Dates: end: 20090701

REACTIONS (4)
  - BLADDER CANCER [None]
  - BLADDER OPERATION [None]
  - PLATELET COUNT DECREASED [None]
  - URINARY BLADDER HAEMORRHAGE [None]
